FAERS Safety Report 20716161 (Version 2)
Quarter: 2022Q2

REPORT INFORMATION
  Report Type: Spontaneous
  Country: DK (occurrence: DK)
  Receive Date: 20220415
  Receipt Date: 20220613
  Transmission Date: 20220720
  Serious: Yes (Hospitalization, Other)
  Sender: FDA-Public Use
  Company Number: DK-BRISTOL-MYERS SQUIBB COMPANY-2022-017285

PATIENT
  Age: 45 Year
  Sex: Female

DRUGS (6)
  1. NIVOLUMAB [Suspect]
     Active Substance: NIVOLUMAB
     Indication: Malignant melanoma
     Dosage: DOSE : 1MG/KG OPDIVO + 3MG/KG YERVOY;     FREQ : UNAVAILABLE
     Route: 042
     Dates: start: 20200722
  2. NIVOLUMAB [Suspect]
     Active Substance: NIVOLUMAB
     Route: 065
  3. NIVOLUMAB [Suspect]
     Active Substance: NIVOLUMAB
     Indication: Malignant melanoma
     Route: 042
     Dates: start: 20200722, end: 20200812
  4. LEVETIRACETAM [Concomitant]
     Active Substance: LEVETIRACETAM
     Indication: Epilepsy
     Dosage: 100+1000MG
     Route: 048
     Dates: start: 20200802
  5. PROPRANOLOL [Concomitant]
     Active Substance: PROPRANOLOL HYDROCHLORIDE
     Indication: Palpitations
     Dosage: PER NECESSARY
     Route: 065
     Dates: start: 20200811
  6. CETIRIZINE HYDROCHLORIDE [Concomitant]
     Active Substance: CETIRIZINE HYDROCHLORIDE
     Indication: Rash
     Dosage: PER NECESSARY
     Route: 048
     Dates: start: 20200807

REACTIONS (1)
  - Autoimmune haemolytic anaemia [Recovered/Resolved]

NARRATIVE: CASE EVENT DATE: 20200821
